FAERS Safety Report 23181541 (Version 1)
Quarter: 2023Q4

REPORT INFORMATION
  Report Type: Spontaneous
  Country: US (occurrence: None)
  Receive Date: 20231113
  Receipt Date: 20231113
  Transmission Date: 20240110
  Serious: Yes (Life-Threatening, Hospitalization)
  Sender: FDA-Public Use
  Company Number: None

PATIENT
  Age: 49 Year
  Sex: Female
  Weight: 45.6 kg

DRUGS (1)
  1. ALPELISIB [Suspect]
     Active Substance: ALPELISIB
     Indication: Breast cancer metastatic
     Dosage: FREQUENCY : DAILY;?
     Route: 048
     Dates: start: 20230601, end: 20231026

REACTIONS (1)
  - Immune-mediated enterocolitis [None]

NARRATIVE: CASE EVENT DATE: 20231024
